FAERS Safety Report 18303528 (Version 3)
Quarter: 2020Q4

REPORT INFORMATION
  Report Type: Spontaneous
  Country: JP (occurrence: JP)
  Receive Date: 20200923
  Receipt Date: 20201111
  Transmission Date: 20210113
  Serious: Yes (Death, Hospitalization, Other)
  Sender: FDA-Public Use
  Company Number: JP-009507513-2009JPN001450J

PATIENT
  Age: 79 Year
  Sex: Male
  Weight: 65 kg

DRUGS (14)
  1. RABEPRAZOLE NA [Concomitant]
     Active Substance: RABEPRAZOLE SODIUM
     Dosage: 10 DOSAGE FORM, QD
     Route: 048
  2. SENNOSIDE [Concomitant]
     Active Substance: SENNOSIDES
     Dosage: 12 MILLIGRAM, QD,BEFORE SLEEP
     Route: 048
  3. GLIMEPIRIDE. [Concomitant]
     Active Substance: GLIMEPIRIDE
     Dosage: 1 DOSAGE FORM, QD
     Route: 048
  4. NAUZELIN [Concomitant]
     Active Substance: DOMPERIDONE
     Dosage: 10 DOSAGE FORM, TID
     Route: 048
  5. JARDIANCE [Concomitant]
     Active Substance: EMPAGLIFLOZIN
     Dosage: 10 DOSAGE FORM, QD
     Route: 048
  6. TRAZENTA [Concomitant]
     Active Substance: LINAGLIPTIN
     Dosage: 5 MILLIGRAM, QD,AFTER BREAKFAST
     Route: 048
     Dates: start: 20200826
  7. URSODEOXYCHOLIC ACID [Concomitant]
     Active Substance: URSODIOL
     Dosage: 100 MILLIGRAM, TID,AFTER BREAKFAST, LUNCH AND SUPPER
     Route: 048
  8. MAGNESIUM OXIDE. [Concomitant]
     Active Substance: MAGNESIUM OXIDE
     Dosage: 500 MILLIGRAM, TID,AFTER BREAKFAST, LUNCH AND SUPPER
     Route: 048
  9. GOOFICE [Concomitant]
     Active Substance: ELOBIXIBAT
     Dosage: 5 MILLIGRAM, QD,BEFORE SUPPER
     Route: 048
  10. EQUMET [Concomitant]
     Active Substance: METFORMIN HYDROCHLORIDE\VILDAGLIPTIN
     Dosage: UNK, BID
     Route: 048
  11. KEYTRUDA [Suspect]
     Active Substance: PEMBROLIZUMAB
     Indication: BLADDER CANCER STAGE IV
     Dosage: 200 MILLIGRAM, Q3W
     Route: 041
     Dates: start: 20200821, end: 20200821
  12. KEYTRUDA [Suspect]
     Active Substance: PEMBROLIZUMAB
     Indication: URETERIC CANCER
  13. MOSAPRIDE CITRATE HYDRATE [Concomitant]
     Active Substance: MOSAPRIDE CITRATE DIHYDRATE
     Dosage: 5 MILLIGRAM, TID,AFTER BREAKFAST, LUNCH AND SUPPER
     Route: 048
     Dates: start: 20200826
  14. MIGLITOL. [Concomitant]
     Active Substance: MIGLITOL
     Dosage: 50 DOSAGE FORM, TID
     Route: 048

REACTIONS (3)
  - Cystitis [Not Recovered/Not Resolved]
  - Immune-mediated renal disorder [Fatal]
  - Immune-mediated hepatic disorder [Fatal]

NARRATIVE: CASE EVENT DATE: 20200826
